FAERS Safety Report 14868438 (Version 1)
Quarter: 2018Q2

REPORT INFORMATION
  Report Type: Spontaneous
  Country: US (occurrence: US)
  Receive Date: 20180509
  Receipt Date: 20180509
  Transmission Date: 20180711
  Serious: No
  Sender: FDA-Public Use
  Company Number: US-AUROBINDO-AUR-APL-2018-011359

PATIENT
  Sex: Female

DRUGS (2)
  1. ESOMEPRAZOLE MAGNESIUM D/R [Suspect]
     Active Substance: ESOMEPRAZOLE MAGNESIUM
     Indication: GASTROOESOPHAGEAL REFLUX DISEASE
  2. ESOMEPRAZOLE MAGNESIUM D/R [Suspect]
     Active Substance: ESOMEPRAZOLE MAGNESIUM
     Indication: APPLICATION SITE PAIN
     Dosage: 2 DOSAGE FORMS
     Route: 065
     Dates: start: 201706

REACTIONS (2)
  - Product substitution issue [Unknown]
  - Drug ineffective [Unknown]
